FAERS Safety Report 9405740 (Version 1)
Quarter: 2013Q3

REPORT INFORMATION
  Report Type: Spontaneous
  Country: PT (occurrence: PT)
  Receive Date: 20130717
  Receipt Date: 20130717
  Transmission Date: 20140515
  Serious: Yes (Hospitalization, Other)
  Sender: FDA-Public Use
  Company Number: PT-ROXANE LABORATORIES, INC.-2013-RO-01163RO

PATIENT
  Age: 73 Year
  Sex: Male

DRUGS (3)
  1. DIGOXIN [Suspect]
     Indication: ATRIAL FIBRILLATION
  2. PREDNISOLONE [Suspect]
  3. AMINOPHYLLINE [Suspect]

REACTIONS (6)
  - Toxicity to various agents [Recovered/Resolved]
  - Leukocytosis [Unknown]
  - Renal impairment [Recovered/Resolved]
  - Hyperthyroidism [Unknown]
  - Hypotension [Unknown]
  - Tachycardia [None]
